FAERS Safety Report 8180529-3 (Version None)
Quarter: 2012Q1

REPORT INFORMATION
  Report Type: 
  Country: None (occurrence: None)
  Receive Date: 20120302
  Receipt Date: 20120227
  Transmission Date: 20120608
  Serious: Yes (Other)
  Sender: FDA-Public Use
  Company Number: PR-ROCHE-1043787

PATIENT
  Age: 19 Year
  Sex: Male

DRUGS (1)
  1. RITUXIMAB [Suspect]
     Indication: IDIOPATHIC THROMBOCYTOPENIC PURPURA
     Dates: start: 20070101

REACTIONS (1)
  - HYPER IGM SYNDROME [None]
